FAERS Safety Report 23417030 (Version 4)
Quarter: 2024Q1

REPORT INFORMATION
  Report Type: Report from Study
  Country: CN (occurrence: CN)
  Receive Date: 20240118
  Receipt Date: 20240315
  Transmission Date: 20240410
  Serious: Yes (Hospitalization, Other)
  Sender: FDA-Public Use
  Company Number: CN-BAXTER-2024BAX010802

PATIENT
  Age: 61 Year
  Sex: Female
  Weight: 60 kg

DRUGS (26)
  1. CYCLOPHOSPHAMIDE [Suspect]
     Active Substance: CYCLOPHOSPHAMIDE
     Indication: Diffuse large B-cell lymphoma stage IV
     Dosage: 933.75 MG, EVERY 3 WEEKS, ONGOING
     Route: 042
     Dates: start: 20231207
  2. EPCORITAMAB [Suspect]
     Active Substance: EPCORITAMAB
     Indication: Diffuse large B-cell lymphoma stage IV
     Dosage: 0.16 MG PRIMARY DOSE C1D1, TOTAL
     Route: 058
     Dates: start: 20231207, end: 20231207
  3. EPCORITAMAB [Suspect]
     Active Substance: EPCORITAMAB
     Dosage: 0.16 MG PRIMARY REPRIMING DOSE, TOTAL
     Route: 058
     Dates: start: 20231218, end: 20231218
  4. EPCORITAMAB [Suspect]
     Active Substance: EPCORITAMAB
     Dosage: 0.8 MG INTERMEDIATE DOSE, TOTAL
     Route: 058
     Dates: start: 20231225, end: 20231225
  5. EPCORITAMAB [Suspect]
     Active Substance: EPCORITAMAB
     Dosage: 48 MG FULL DOSE, EVERY 1 WEEKS
     Route: 058
     Dates: start: 20240103, end: 20240103
  6. EPCORITAMAB [Suspect]
     Active Substance: EPCORITAMAB
     Dosage: 48 MG, C2- 4, D1, 8 + 15, EVERY 1 WEEKS
     Route: 058
     Dates: start: 20240119
  7. VINCRISTINE [Suspect]
     Active Substance: VINCRISTINE
     Indication: Diffuse large B-cell lymphoma stage IV
     Dosage: 2 MG, EVERY 3 WEEKS, ONGOING
     Route: 042
     Dates: start: 20231207
  8. RITUXIMAB [Suspect]
     Active Substance: RITUXIMAB
     Indication: Diffuse large B-cell lymphoma stage IV
     Dosage: 622.5 MG, EVERY 3 WEEKS, ONGOING
     Route: 042
     Dates: start: 20231206
  9. DOXORUBICIN [Suspect]
     Active Substance: DOXORUBICIN
     Indication: Diffuse large B-cell lymphoma stage IV
     Dosage: 62.25 MG, EVERY 3 WEEKS, ONGOING
     Route: 042
     Dates: start: 20231207
  10. PREDNISONE [Suspect]
     Active Substance: PREDNISONE
     Indication: Diffuse large B-cell lymphoma stage IV
     Dosage: 100 MG C1-6, D1-5, EVERY 1 DAYS, ONGOING
     Route: 048
     Dates: start: 20231206
  11. OMEPRAZOLE [Concomitant]
     Active Substance: OMEPRAZOLE
     Indication: Gastrointestinal disorder prophylaxis
     Dosage: 20 MG, EVERY 1 DAYS
     Route: 065
     Dates: start: 20231218
  12. SULFAMETHOXAZOLE [Concomitant]
     Active Substance: SULFAMETHOXAZOLE
     Indication: Antifungal prophylaxis
     Dosage: 2 DOSAGE FORM, EVERY 1 DAYS
     Route: 065
     Dates: start: 20240103
  13. MUCOPOLYSACCHARIDE POLYSULFATE [Concomitant]
     Indication: Skin disorder prophylaxis
     Dosage: UNK, AS NECESSARY
     Route: 065
     Dates: start: 20240104
  14. PREDNISONE ACETATE [Concomitant]
     Active Substance: PREDNISONE ACETATE
     Indication: Pain
     Dosage: 60 MG, EVERY 1 DAYS
     Route: 065
     Dates: start: 20231128, end: 20231204
  15. TRAMADOL HYDROCHLORIDE [Concomitant]
     Active Substance: TRAMADOL HYDROCHLORIDE
     Indication: Pain
     Dosage: 0.1 G, EVERY 12 HOURS
     Route: 065
     Dates: start: 20231125, end: 20231208
  16. ESTAZOLAM [Concomitant]
     Active Substance: ESTAZOLAM
     Indication: Sleep deficit
     Dosage: 1 MG, EVERY 1 DAYS
     Route: 065
     Dates: start: 20231123, end: 20231208
  17. PROMETHAZINE HYDROCHLORIDE [Concomitant]
     Active Substance: PROMETHAZINE HYDROCHLORIDE
     Indication: Prophylaxis
     Dosage: 25 MG, EVEY 1 DAYS
     Route: 065
     Dates: start: 20231206, end: 20240103
  18. ACETAMINOPHEN [Concomitant]
     Active Substance: ACETAMINOPHEN
     Indication: Prophylaxis
     Dosage: 1000 MG, EVERY 1 DAYS
     Route: 065
     Dates: start: 20231218, end: 20240103
  19. ACETAMINOPHEN [Concomitant]
     Active Substance: ACETAMINOPHEN
     Dosage: 1000 MG, AS NECESSARY
     Route: 065
     Dates: start: 20231206, end: 20240103
  20. ESOMEPRAZOLE SODIUM [Concomitant]
     Active Substance: ESOMEPRAZOLE SODIUM
     Indication: Gastrointestinal disorder prophylaxis
     Dosage: 40 MG, EVERY 1 DAYS
     Route: 065
     Dates: start: 20240103
  21. ONDANSETRON [Concomitant]
     Active Substance: ONDANSETRON
     Indication: Prophylaxis of nausea and vomiting
     Dosage: 8 MG, EVERY 1 DAYS
     Route: 065
     Dates: start: 20240103, end: 20240103
  22. ANF-RHO [Concomitant]
     Active Substance: ANF-RHO
     Indication: Prophylaxis
     Dosage: 6 MG, AS NECESSARY
     Route: 065
     Dates: start: 20231208
  23. ANF-RHO [Concomitant]
     Active Substance: ANF-RHO
     Dosage: 6 MG, TOTAL
     Route: 065
     Dates: start: 20240104, end: 20240104
  24. METOCLOPRAMIDE HYDROCHLORIDE [Concomitant]
     Active Substance: METOCLOPRAMIDE HYDROCHLORIDE
     Indication: Vomiting
     Dosage: 10 MG, TOTAL
     Route: 065
     Dates: start: 20240104, end: 20240104
  25. POTASSIUM CHLORIDE [Concomitant]
     Active Substance: POTASSIUM CHLORIDE
     Indication: Electrolyte substitution therapy
     Dosage: 10 ML 10%, EVERY 1 DAYS
     Route: 065
     Dates: start: 20240104
  26. POTASSIUM CHLORIDE [Concomitant]
     Active Substance: POTASSIUM CHLORIDE
     Indication: Mineral supplementation

REACTIONS (1)
  - Cytokine release syndrome [Recovered/Resolved]

NARRATIVE: CASE EVENT DATE: 20240104
